FAERS Safety Report 8842308 (Version 3)
Quarter: 2013Q1

REPORT INFORMATION
  Report Type: Report from Study
  Country: NZ (occurrence: NZ)
  Receive Date: 20121016
  Receipt Date: 20130219
  Transmission Date: 20140127
  Serious: Yes (Hospitalization)
  Sender: FDA-Public Use
  Company Number: NZ-009507513-1206USA02515

PATIENT
  Age: 56 Year
  Sex: Female
  Weight: 65 kg

DRUGS (48)
  1. VANIPREVIR [Suspect]
     Indication: CHRONIC HEPATITIS C
     Dosage: 2 DF, QAM
     Route: 048
     Dates: start: 20110525, end: 20110703
  2. VANIPREVIR [Suspect]
     Dosage: 2 DF, QPM
     Route: 048
     Dates: start: 20110525, end: 20110617
  3. VANIPREVIR [Suspect]
     Dosage: 2 DF, QPM
     Route: 048
     Dates: start: 20110619, end: 20111213
  4. VANIPREVIR [Suspect]
     Dosage: 2 DF, QAM
     Route: 048
     Dates: start: 20110705, end: 20110711
  5. VANIPREVIR [Suspect]
     Dosage: 2 DF, QAM
     Route: 048
     Dates: start: 20110713, end: 20120425
  6. VANIPREVIR [Suspect]
     Dosage: 2 DF, QPM
     Dates: start: 20111215, end: 20120422
  7. VANIPREVIR [Suspect]
     Dosage: 2 DF, QPM
     Route: 048
     Dates: start: 20120424, end: 20120425
  8. PEGINTERFERON ALFA-2A [Suspect]
     Indication: CHRONIC HEPATITIS C
     Dosage: 180 MICROGRAM, QW
     Route: 058
     Dates: start: 20110525, end: 20110819
  9. PEGINTERFERON ALFA-2A [Suspect]
     Dosage: 180 MICROGRAM, QW
     Route: 058
     Dates: start: 20110909, end: 20111223
  10. PEGINTERFERON ALFA-2A [Suspect]
     Dosage: 180 MICROGRAM, QW
     Route: 058
     Dates: start: 20120106, end: 20120316
  11. PEGINTERFERON ALFA-2A [Suspect]
     Dosage: 180 MICROGRAM, QW
     Route: 058
     Dates: start: 20120330, end: 20120420
  12. RIBAVIRIN [Suspect]
     Indication: CHRONIC HEPATITIS C
     Dosage: 3 DF, QAM
     Route: 048
     Dates: start: 20110525, end: 20120703
  13. RIBAVIRIN [Suspect]
     Dosage: 2 DF, QPM
     Route: 048
     Dates: start: 20110525, end: 20120617
  14. RIBAVIRIN [Suspect]
     Dosage: 2 DF, QPM
     Route: 048
     Dates: start: 20110619, end: 20111108
  15. RIBAVIRIN [Suspect]
     Dosage: 3 DF, QAM
     Route: 048
     Dates: start: 20110705, end: 20110711
  16. RIBAVIRIN [Suspect]
     Dosage: 3 DF, QAM
     Route: 048
     Dates: start: 20110713, end: 20110719
  17. RIBAVIRIN [Suspect]
     Dosage: 2 DF, QAM
     Route: 048
     Dates: start: 20110720, end: 20110813
  18. RIBAVIRIN [Suspect]
     Dosage: 3 DF, QAM
     Route: 048
     Dates: start: 20110814, end: 20110819
  19. RIBAVIRIN [Suspect]
     Dosage: 2 DF, QAM
     Route: 048
     Dates: start: 20110820, end: 20110827
  20. RIBAVIRIN [Suspect]
     Dosage: 3 DF, QAM
     Route: 048
     Dates: start: 20110828, end: 20110909
  21. RIBAVIRIN [Suspect]
     Dosage: 2 DF, QAM
     Route: 048
     Dates: start: 20110910, end: 20110923
  22. RIBAVIRIN [Suspect]
     Dosage: 3 DF, QAM
     Route: 048
     Dates: start: 20110924, end: 20111012
  23. RIBAVIRIN [Suspect]
     Dosage: 2 DF, QAM
     Route: 048
     Dates: start: 20111013, end: 20111023
  24. RIBAVIRIN [Suspect]
     Dosage: 3 DF, QAM
     Route: 048
     Dates: start: 20111024, end: 20111109
  25. RIBAVIRIN [Suspect]
     Dosage: 2 DF, QAM
     Route: 048
     Dates: start: 20111110, end: 20111206
  26. RIBAVIRIN [Suspect]
     Dosage: 1 DF, QPM
     Route: 048
     Dates: start: 20111109, end: 20111109
  27. RIBAVIRIN [Suspect]
     Dosage: 2 DF, QPM
     Route: 048
     Dates: start: 20111110, end: 20111213
  28. RIBAVIRIN [Suspect]
     Dosage: 3 DF, QAM
     Route: 048
     Dates: start: 20111207, end: 20120111
  29. RIBAVIRIN [Suspect]
     Dosage: 2 DF, QPM
     Route: 048
     Dates: start: 20111215, end: 20120422
  30. RIBAVIRIN [Suspect]
     Dosage: 2 DF, QAM
     Route: 048
     Dates: start: 20120112, end: 20120120
  31. RIBAVIRIN [Suspect]
     Dosage: 3 DF, QAM
     Route: 048
     Dates: start: 20120121, end: 20120131
  32. RIBAVIRIN [Suspect]
     Dosage: 3 DF, QAM
     Route: 048
     Dates: start: 20120201, end: 20120201
  33. RIBAVIRIN [Suspect]
     Dosage: 2 DF, QAM
     Route: 048
     Dates: start: 20120202, end: 20120228
  34. RIBAVIRIN [Suspect]
     Dosage: 2 DF, QAM
     Route: 048
     Dates: start: 20120229, end: 20120309
  35. RIBAVIRIN [Suspect]
     Dosage: 3 DF, QAM
     Route: 048
     Dates: start: 20120310, end: 20120327
  36. RIBAVIRIN [Suspect]
     Dosage: 3 DF, QAM
     Route: 048
     Dates: start: 20120328, end: 20120329
  37. RIBAVIRIN [Suspect]
     Dosage: 2 DF, QAM
     Route: 048
     Dates: start: 20120330, end: 20120416
  38. RIBAVIRIN [Suspect]
     Dosage: 3 DF, QAM
     Route: 048
     Dates: start: 20120417, end: 20120425
  39. RIBAVIRIN [Suspect]
     Dosage: 2 DF, QPM
     Route: 048
     Dates: start: 20120424, end: 20120425
  40. RIBAVIRIN [Suspect]
     Dosage: UNK
  41. TRIAZOLAM [Concomitant]
     Indication: INSOMNIA
     Dosage: UNK UNK, PRN
     Route: 048
     Dates: start: 20020101
  42. SYMBICORT [Concomitant]
     Indication: ASTHMA
     Dosage: 2 DF, BID
     Route: 055
     Dates: start: 20050101
  43. ALBUTEROL [Concomitant]
     Indication: ASTHMA
     Dosage: UNK UNK, PRN
     Route: 055
     Dates: start: 19830101
  44. OMEPRAZOLE [Concomitant]
     Indication: GASTROOESOPHAGEAL REFLUX DISEASE
     Dosage: 40 MG, PRN
     Route: 048
     Dates: start: 19860101
  45. METHADONE HYDROCHLORIDE [Concomitant]
     Indication: ROUTINE HEALTH MAINTENANCE
     Dosage: 80 MG, QD
     Route: 048
     Dates: start: 20020101
  46. ACETAMINOPHEN [Concomitant]
     Indication: HEADACHE
     Dosage: UNK UNK, PRN
     Route: 048
     Dates: start: 20100101
  47. ACETAMINOPHEN [Concomitant]
     Indication: PROPHYLAXIS
  48. MOVICOL [Concomitant]
     Indication: CONSTIPATION
     Dosage: 1 DF, PRN
     Route: 048
     Dates: start: 20110104, end: 20120710

REACTIONS (1)
  - Constipation [Recovered/Resolved]
